FAERS Safety Report 23585643 (Version 2)
Quarter: 2024Q1

REPORT INFORMATION
  Report Type: Spontaneous
  Country: DE (occurrence: DE)
  Receive Date: 20240301
  Receipt Date: 20240308
  Transmission Date: 20240410
  Serious: Yes (Hospitalization, Other)
  Sender: FDA-Public Use
  Company Number: DE-BRISTOL-MYERS SQUIBB COMPANY-2024-005310

PATIENT
  Age: 66 Year
  Sex: Female
  Weight: 72 kg

DRUGS (13)
  1. CARBOPLATIN [Suspect]
     Active Substance: CARBOPLATIN
     Indication: Non-small cell lung cancer
     Dosage: 5 AUC - MG/MIN*ML
     Route: 042
     Dates: start: 20231220
  2. CARBOPLATIN [Suspect]
     Active Substance: CARBOPLATIN
     Dosage: 5 AUC - MG/MIN*ML
     Route: 042
     Dates: start: 20240118
  3. PACLITAXEL [Suspect]
     Active Substance: PACLITAXEL
     Dosage: 100 MG/M2
     Route: 042
     Dates: start: 20240125, end: 20240125
  4. PACLITAXEL [Suspect]
     Active Substance: PACLITAXEL
     Indication: Non-small cell lung cancer
     Dosage: 100.000MG/M2
     Route: 042
     Dates: start: 20231220
  5. PACLITAXEL [Suspect]
     Active Substance: PACLITAXEL
     Dosage: 100.000MG/M2
     Route: 042
     Dates: start: 20231227
  6. PACLITAXEL [Suspect]
     Active Substance: PACLITAXEL
     Dosage: 100.000MG/M2
     Route: 042
     Dates: start: 20240118
  7. NIVOLUMAB [Suspect]
     Active Substance: NIVOLUMAB
     Indication: Non-small cell lung cancer
     Dosage: FREQUENCY: 21 DAYS/CYCLE FOR 3 CYCLES
     Route: 042
     Dates: start: 20231220
  8. ASPIRIN [Concomitant]
     Active Substance: ASPIRIN
     Indication: Hypertension
     Dosage: 999 (UNITS UNKNOWN)
     Route: 048
  9. BISOPROLOL [Concomitant]
     Active Substance: BISOPROLOL\BISOPROLOL FUMARATE
     Indication: Hypertension
     Dosage: 999 (UNITS UNKNOWN)
     Route: 048
  10. BUDESONIDE [Concomitant]
     Active Substance: BUDESONIDE
     Indication: Chronic obstructive pulmonary disease
     Dosage: 999 (UNITS UNKNOWN)
     Route: 055
  11. FORMOTEROL [Concomitant]
     Active Substance: FORMOTEROL
     Indication: Chronic obstructive pulmonary disease
     Dosage: 999 (UNITS UNKNOWN)
     Route: 055
  12. RAMIPRIL [Concomitant]
     Active Substance: RAMIPRIL
     Indication: Coronary artery disease
     Dosage: 999 (UNITS UNKNOWN)
     Route: 048
  13. SIMVASTATIN [Concomitant]
     Active Substance: SIMVASTATIN
     Indication: Prophylaxis
     Dosage: 999 (UNITS UNKNOWN)
     Route: 048

REACTIONS (2)
  - Haemoptysis [Recovering/Resolving]
  - Neutropenia [Recovered/Resolved]

NARRATIVE: CASE EVENT DATE: 20240107
